FAERS Safety Report 6966337-7 (Version None)
Quarter: 2010Q3

REPORT INFORMATION
  Report Type: 
  Country: None (occurrence: None)
  Receive Date: 20100903
  Receipt Date: 20100827
  Transmission Date: 20110219
  Serious: Yes (Other)
  Sender: FDA-Public Use
  Company Number: US-ROCHE-706942

PATIENT
  Sex: Male
  Weight: 74.8 kg

DRUGS (6)
  1. ACCUTANE [Suspect]
     Route: 048
     Dates: start: 19991201, end: 20000301
  2. ACCUTANE [Suspect]
     Route: 048
     Dates: start: 20011217, end: 20020116
  3. CLARAVIS [Suspect]
     Route: 048
     Dates: start: 20031001, end: 20040501
  4. ACETAMINOPHEN [Concomitant]
  5. ADVIL LIQUI-GELS [Concomitant]
  6. PAXIL [Concomitant]
     Indication: DEPRESSION

REACTIONS (9)
  - COLITIS [None]
  - COLITIS ULCERATIVE [None]
  - DEPRESSION [None]
  - HEPATIC ENZYME INCREASED [None]
  - INFECTIOUS MONONUCLEOSIS [None]
  - INFLAMMATORY BOWEL DISEASE [None]
  - LYMPHOCYTE COUNT INCREASED [None]
  - PANIC ATTACK [None]
  - PARONYCHIA [None]
